FAERS Safety Report 7747268-1 (Version None)
Quarter: 2011Q3

REPORT INFORMATION
  Report Type: 
  Country: None (occurrence: None)
  Receive Date: 20110913
  Receipt Date: 20110909
  Transmission Date: 20111222
  Serious: Yes (Other)
  Sender: FDA-Public Use
  Company Number: JP-PFIZER INC-2011213089

PATIENT
  Age: 76 Year
  Sex: Male

DRUGS (4)
  1. VARENICLINE TARTRATE [Suspect]
     Indication: SMOKING CESSATION THERAPY
     Dosage: 0.5 MG, DAILY
     Route: 048
     Dates: start: 20110805, end: 20110807
  2. VARENICLINE TARTRATE [Suspect]
     Dosage: 2 MG, DAILY
     Route: 048
     Dates: start: 20110812, end: 20110823
  3. VARENICLINE TARTRATE [Suspect]
     Dosage: 1 MG, DAILY
     Route: 048
     Dates: start: 20110808, end: 20110811
  4. VARENICLINE TARTRATE [Suspect]
     Dosage: UNK
     Dates: start: 20110905, end: 20110901

REACTIONS (5)
  - DYSGEUSIA [None]
  - ABDOMINAL DISTENSION [None]
  - NAUSEA [None]
  - MALAISE [None]
  - HEPATIC FUNCTION ABNORMAL [None]
